FAERS Safety Report 10703282 (Version 2)
Quarter: 2015Q1

REPORT INFORMATION
  Report Type: Spontaneous
  Country: US (occurrence: US)
  Receive Date: 20150112
  Receipt Date: 20150204
  Transmission Date: 20150721
  Serious: Yes (Disabling, Other)
  Sender: FDA-Public Use
  Company Number: US-009507513-1501USA001872

PATIENT
  Age: 68 Year
  Sex: Female

DRUGS (4)
  1. EVISTA [Concomitant]
     Active Substance: RALOXIFENE HYDROCHLORIDE
  2. FOLBIC [Concomitant]
     Active Substance: CYANOCOBALAMIN\FOLIC ACID\PYRIDOXINE
  3. ELAVIL [Concomitant]
     Active Substance: AMITRIPTYLINE HYDROCHLORIDE
  4. LIPTRUZET [Suspect]
     Active Substance: ATORVASTATIN CALCIUM\EZETIMIBE
     Indication: BLOOD CHOLESTEROL INCREASED
     Dosage: 1 DOSE FORM (10/40 MG), QD
     Route: 048
     Dates: start: 20130926

REACTIONS (6)
  - Gait disturbance [Unknown]
  - Tension [Unknown]
  - Muscular weakness [Unknown]
  - Anxiety [Unknown]
  - Back pain [Unknown]
  - Paralysis [Unknown]

NARRATIVE: CASE EVENT DATE: 201402
